FAERS Safety Report 10255969 (Version 5)
Quarter: 2014Q4

REPORT INFORMATION
  Report Type: Spontaneous
  Country: US (occurrence: US)
  Receive Date: 20140624
  Receipt Date: 20141120
  Transmission Date: 20150528
  Serious: Yes (Other)
  Sender: FDA-Public Use
  Company Number: US-PFIZER INC-2014170033

PATIENT
  Sex: Female

DRUGS (2)
  1. NEURONTIN [Suspect]
     Active Substance: GABAPENTIN
     Dosage: UNK
  2. LYRICA [Suspect]
     Active Substance: PREGABALIN
     Indication: NEUROPATHY PERIPHERAL
     Dosage: 75 MG, 2X/DAY

REACTIONS (14)
  - Neck deformity [Unknown]
  - Intervertebral disc disorder [Unknown]
  - Neuralgia [Unknown]
  - Gait disturbance [Unknown]
  - Aptyalism [Unknown]
  - Drug ineffective [Unknown]
  - Neuropathy peripheral [Unknown]
  - Swelling [Unknown]
  - Vision blurred [Unknown]
  - Sialoadenitis [Unknown]
  - Pain [Unknown]
  - Malaise [Unknown]
  - Oedema [Unknown]
  - Breakthrough pain [Unknown]

NARRATIVE: CASE EVENT DATE: 20140826
